FAERS Safety Report 15292373 (Version 1)
Quarter: 2018Q4

REPORT INFORMATION
  Report Type: Spontaneous
  Country: FR (occurrence: FR)
  Receive Date: 20180818
  Receipt Date: 20180818
  Transmission Date: 20190204
  Serious: Yes (Death, Other)
  Sender: FDA-Public Use
  Company Number: FR-AUROBINDO-AUR-APL-2018-042046

PATIENT
  Age: 44 Year
  Sex: Male
  Weight: 64 kg

DRUGS (6)
  1. CISPLATINE [Suspect]
     Active Substance: CISPLATIN
     Indication: TESTICULAR GERM CELL TUMOUR
     Dosage: UNK
     Route: 042
     Dates: start: 20180406, end: 20180612
  2. TAXOL [Concomitant]
     Active Substance: PACLITAXEL
     Indication: TESTICULAR GERM CELL TUMOUR
     Dosage: UNK
     Route: 042
     Dates: start: 20180427
  3. OXALIPLATIN. [Suspect]
     Active Substance: OXALIPLATIN
     Indication: TESTICULAR GERM CELL TUMOUR
     Dosage: UNK
     Route: 042
     Dates: start: 20180506, end: 20180528
  4. BLEOMYCINE                         /00183902/ [Suspect]
     Active Substance: BLEOMYCIN SULFATE
     Indication: TESTICULAR GERM CELL TUMOUR
     Dosage: UNK
     Route: 042
     Dates: start: 20180406, end: 20180612
  5. VEPESIDE [Suspect]
     Active Substance: ETOPOSIDE
     Indication: TESTICULAR GERM CELL TUMOUR
     Dosage: UNK
     Route: 042
     Dates: start: 20180406, end: 20180522
  6. HOLOXAN [Suspect]
     Active Substance: IFOSFAMIDE
     Indication: TESTICULAR GERM CELL TUMOUR
     Dosage: UNK
     Route: 042
     Dates: start: 20180608, end: 20180612

REACTIONS (1)
  - Interstitial lung disease [Fatal]

NARRATIVE: CASE EVENT DATE: 20180706
